FAERS Safety Report 18853211 (Version 1)
Quarter: 2021Q1

REPORT INFORMATION
  Report Type: Report from Study
  Country: None (occurrence: US)
  Receive Date: 20210205
  Receipt Date: 20210205
  Transmission Date: 20210420
  Serious: No
  Sender: FDA-Public Use
  Company Number: US-BIOVITRUM-2021US0902

PATIENT
  Sex: Male

DRUGS (3)
  1. EPANED [Concomitant]
     Active Substance: ENALAPRIL MALEATE
  2. FAMOTIDINE. [Concomitant]
     Active Substance: FAMOTIDINE
  3. SYNAGIS [Suspect]
     Active Substance: PALIVIZUMAB
     Indication: ANTIVIRAL PROPHYLAXIS
     Route: 030
     Dates: start: 20201112

REACTIONS (1)
  - Rash [Recovered/Resolved]
